FAERS Safety Report 20769268 (Version 1)
Quarter: 2022Q2

REPORT INFORMATION
  Report Type: 
  Country: JP (occurrence: JP)
  Receive Date: 20220429
  Receipt Date: 20220429
  Transmission Date: 20220721
  Serious: Yes (Death)
  Sender: FDA-Public Use
  Company Number: JP-JNJFOC-20220454711

PATIENT
  Age: 77 Year
  Sex: Male
  Weight: 63 kg

DRUGS (33)
  1. DARZALEX [Suspect]
     Active Substance: DARATUMUMAB
     Indication: Plasma cell myeloma
     Dosage: DOSE UNKNOWN
     Route: 041
     Dates: start: 20180731, end: 20181016
  2. DARZALEX [Suspect]
     Active Substance: DARATUMUMAB
     Dosage: DOSE UNKNOWN
     Route: 041
     Dates: start: 20181113, end: 20181127
  3. DARZALEX [Suspect]
     Active Substance: DARATUMUMAB
     Route: 041
     Dates: start: 20201203, end: 20210126
  4. DARZALEX [Suspect]
     Active Substance: DARATUMUMAB
     Route: 041
     Dates: start: 20210202, end: 20210413
  5. DARATUMUMAB [Suspect]
     Active Substance: DARATUMUMAB
     Indication: Plasma cell myeloma
     Dosage: DOSE UNKNOWN
     Route: 058
     Dates: start: 20210928, end: 20211130
  6. DARATUMUMAB [Suspect]
     Active Substance: DARATUMUMAB
     Dosage: DOSE UNKNOWN
     Route: 058
     Dates: start: 20211207, end: 20220107
  7. VELCADE [Suspect]
     Active Substance: BORTEZOMIB
     Indication: Plasma cell myeloma
     Route: 042
     Dates: start: 20170802, end: 20180301
  8. VELCADE [Suspect]
     Active Substance: BORTEZOMIB
     Dosage: DOSE UNKNOWN
     Route: 042
     Dates: start: 20210928, end: 20211130
  9. VELCADE [Suspect]
     Active Substance: BORTEZOMIB
     Dosage: DOSE UNKNOWN
     Route: 042
     Dates: start: 20211207, end: 20220107
  10. REVLIMID [Suspect]
     Active Substance: LENALIDOMIDE
     Indication: Plasma cell myeloma
     Route: 048
     Dates: start: 20170928, end: 20180814
  11. EMPLICITI [Concomitant]
     Active Substance: ELOTUZUMAB
     Dosage: DOSE UNKNOWN
     Route: 065
     Dates: start: 20180417, end: 20180605
  12. EMPLICITI [Concomitant]
     Active Substance: ELOTUZUMAB
     Dosage: DOSE UNKNOWN
     Route: 065
     Dates: start: 20180619, end: 20180717
  13. EMPLICITI [Concomitant]
     Active Substance: ELOTUZUMAB
     Dosage: DOSE UNKNOWN
     Route: 065
     Dates: start: 20190409, end: 20190604
  14. EMPLICITI [Concomitant]
     Active Substance: ELOTUZUMAB
     Dosage: DOSE UNKNOWN
     Route: 065
     Dates: start: 20190618, end: 20201124
  15. EMPLICITI [Concomitant]
     Active Substance: ELOTUZUMAB
     Dosage: DOSE UNKNOWN
     Route: 065
     Dates: start: 20210511, end: 20210629
  16. EMPLICITI [Concomitant]
     Active Substance: ELOTUZUMAB
     Dosage: DOSE UNKNOWN
     Route: 065
     Dates: start: 20210706, end: 20210831
  17. SARCLISA [Concomitant]
     Active Substance: ISATUXIMAB-IRFC
     Dosage: DOSE UNKNOWN
     Route: 065
     Dates: start: 20220125, end: 20220125
  18. SARCLISA [Concomitant]
     Active Substance: ISATUXIMAB-IRFC
     Dosage: DOSE UNKNOWN
     Route: 065
     Dates: start: 20220201, end: 20220201
  19. CALONAL [Concomitant]
     Active Substance: ACETAMINOPHEN
     Dosage: AFTER EACH MEAL
     Route: 048
  20. LYRICA [Concomitant]
     Active Substance: PREGABALIN
     Dosage: AFTER BREAKFAST, AT BEDTIME
     Route: 048
  21. TIZANIDINE [Concomitant]
     Active Substance: TIZANIDINE
     Dosage: AFTER EACH MEAL
     Route: 048
  22. LOXOPROFEN SODIUM [Concomitant]
     Active Substance: LOXOPROFEN SODIUM
     Dosage: 100MG 2 SHEETS, 50MG 1 SHEET
     Route: 062
  23. NAFTOPIDIL [Concomitant]
     Active Substance: NAFTOPIDIL
     Dosage: AFTER DINNER
     Route: 048
  24. TADALAFIL [Concomitant]
     Active Substance: TADALAFIL
     Dosage: AFTER DINNER
     Route: 048
  25. REBAMIPIDE [Concomitant]
     Active Substance: REBAMIPIDE
     Dosage: AFTER BREAKFAST, AFTER DINNER
     Route: 048
  26. XARELTO OD [Concomitant]
     Dosage: AFTER BREAKFAST
     Route: 048
  27. ELDECALCITOL [Concomitant]
     Active Substance: ELDECALCITOL
     Dosage: AFTER BREAKFAST
     Route: 048
  28. FEBUXOSTAT [Concomitant]
     Active Substance: FEBUXOSTAT
     Dosage: AFTER BREAKFAST
     Route: 048
  29. LANSOPRAZOLE [Concomitant]
     Active Substance: LANSOPRAZOLE
     Dosage: AFTER DINNER
     Route: 048
  30. POMALYST [Concomitant]
     Active Substance: POMALIDOMIDE
     Dosage: AFTER BREAKFAST (3 DAYS ADMINISTRATION 1 DAY WITHDRAWAL)
     Route: 048
  31. SPIRIVA [Concomitant]
     Active Substance: TIOTROPIUM BROMIDE MONOHYDRATE
     Dosage: 2 INHALATIONS AT A TIME
     Route: 055
  32. DIQUAFOSOL TETRASODIUM [Concomitant]
     Active Substance: DIQUAFOSOL TETRASODIUM
     Dosage: DOSE UNKNOWN, 2-3 TIMES/DAY, BOTH EYES
     Route: 047
  33. HYALURONATE SODIUM [Concomitant]
     Active Substance: HYALURONATE SODIUM
     Dosage: DOSE UNKNOWN, P.R.N
     Route: 047

REACTIONS (1)
  - Hepatitis B reactivation [Fatal]

NARRATIVE: CASE EVENT DATE: 20220201
